FAERS Safety Report 7009729-2 (Version None)
Quarter: 2010Q3

REPORT INFORMATION
  Report Type: 
  Country: None (occurrence: None)
  Receive Date: 20100923
  Receipt Date: 20100916
  Transmission Date: 20110219
  Serious: Yes (Other)
  Sender: FDA-Public Use
  Company Number: US-ABBOTT-10P-163-0671320-00

PATIENT
  Sex: Female
  Weight: 74.91 kg

DRUGS (2)
  1. HUMIRA [Suspect]
     Indication: RHEUMATOID ARTHRITIS
  2. VICODIN [Concomitant]
     Indication: PAIN

REACTIONS (4)
  - KIDNEY INFECTION [None]
  - NEPHROLITHIASIS [None]
  - RENAL PAIN [None]
  - SINUSITIS [None]
